FAERS Safety Report 14783053 (Version 2)
Quarter: 2018Q2

REPORT INFORMATION
  Report Type: Report from Study
  Country: JP (occurrence: JP)
  Receive Date: 20180420
  Receipt Date: 20180425
  Transmission Date: 20180711
  Serious: No
  Sender: FDA-Public Use
  Company Number: PHJP2018JP008732

PATIENT
  Age: 38 Year
  Sex: Female

DRUGS (2)
  1. CABASER [Concomitant]
     Active Substance: CABERGOLINE
     Indication: ACROMEGALY
     Dosage: UNK
     Route: 048
  2. SIGNIFOR LAR [Suspect]
     Active Substance: PASIREOTIDE
     Indication: ACROMEGALY
     Dosage: 40 MG Q4W
     Route: 030

REACTIONS (1)
  - Hyperglycaemia [Not Recovered/Not Resolved]

NARRATIVE: CASE EVENT DATE: 20170418
